FAERS Safety Report 22261734 (Version 2)
Quarter: 2023Q2

REPORT INFORMATION
  Report Type: Report from Study
  Country: AT (occurrence: AT)
  Receive Date: 20230428
  Receipt Date: 20230529
  Transmission Date: 20230721
  Serious: Yes (Hospitalization, Other)
  Sender: FDA-Public Use
  Company Number: AT-ABBVIE-4736858

PATIENT
  Age: 68 Year
  Sex: Female
  Weight: 58 kg

DRUGS (3)
  1. RINVOQ [Suspect]
     Active Substance: UPADACITINIB
     Indication: Dermatitis atopic
     Dosage: 15MG OR 30MG OR PLACEBO (BLINDED)?FREQUENCY TEXT: ONCE DAILY
     Route: 048
     Dates: start: 20191016, end: 20200205
  2. RINVOQ [Suspect]
     Active Substance: UPADACITINIB
     Indication: Dermatitis atopic
     Dosage: 15MG OR 30MG (BLINDED)?FREQUENCY TEXT: ONCE DAILY
     Route: 048
     Dates: start: 20200206, end: 20201125
  3. RINVOQ [Suspect]
     Active Substance: UPADACITINIB
     Indication: Dermatitis atopic
     Route: 048

REACTIONS (5)
  - Gastrointestinal carcinoma [Recovered/Resolved]
  - Colon cancer metastatic [Recovered/Resolved]
  - Staphylococcal infection [Unknown]
  - Staphylococcal infection [Unknown]
  - Device related thrombosis [Unknown]

NARRATIVE: CASE EVENT DATE: 20210101
